FAERS Safety Report 4582348-3 (Version None)
Quarter: 2005Q1

REPORT INFORMATION
  Report Type: 
  Country: None (occurrence: None)
  Receive Date: 20050118
  Receipt Date: 20040802
  Transmission Date: 20050727
  Serious: No
  Sender: FDA-Public Use
  Company Number: 376659

PATIENT
  Age: 17 Year
  Sex: Male
  Weight: 104 kg

DRUGS (2)
  1. ROCEPHIN [Suspect]
     Indication: ABSCESS LIMB
     Dosage: 2 GRAM 1 PER DAY INTRAVENOUS
     Route: 042
     Dates: start: 20040624, end: 20040717
  2. RIFAMPIN [Concomitant]

REACTIONS (5)
  - HEADACHE [None]
  - NEUTROPENIA [None]
  - NEUTROPHIL COUNT DECREASED [None]
  - PYREXIA [None]
  - WHITE BLOOD CELL COUNT DECREASED [None]
